FAERS Safety Report 5069339-3 (Version None)
Quarter: 2006Q3

REPORT INFORMATION
  Report Type: 
  Country: None (occurrence: None)
  Receive Date: 20060802
  Receipt Date: 20060802
  Transmission Date: 20061208
  Serious: No
  Sender: FDA-Public Use
  Company Number: None

PATIENT
  Age: 30 Year
  Sex: Female
  Weight: 59 kg

DRUGS (1)
  1. MAGNESIUM SULFATE [Suspect]
     Indication: BACTERIAL TOXAEMIA
     Dosage: 2GM  50CC/HR  IVPB
     Route: 042
     Dates: start: 20060710

REACTIONS (2)
  - CARDIOVASCULAR DISORDER [None]
  - HYPOTENSION [None]
